FAERS Safety Report 25499986 (Version 1)
Quarter: 2025Q3

REPORT INFORMATION
  Report Type: Spontaneous
  Country: CA (occurrence: CA)
  Receive Date: 20250701
  Receipt Date: 20250701
  Transmission Date: 20251021
  Serious: Yes (Death, Life-Threatening, Hospitalization, Disabling, Other)
  Sender: PURDUE
  Company Number: CA-PURDUE-USA-2025-0318528

PATIENT
  Age: 80 Year
  Sex: Male
  Weight: 69 kg

DRUGS (138)
  1. HYDROMORPHONE HYDROCHLORIDE [Suspect]
     Active Substance: HYDROMORPHONE HYDROCHLORIDE
     Indication: Analgesic therapy
     Route: 058
  2. HYDROMORPHONE HYDROCHLORIDE [Suspect]
     Active Substance: HYDROMORPHONE HYDROCHLORIDE
     Indication: Off label use
     Route: 058
  3. HYDROMORPHONE HYDROCHLORIDE [Suspect]
     Active Substance: HYDROMORPHONE HYDROCHLORIDE
     Indication: Intentional product misuse
     Route: 058
  4. HYDROMORPHONE HYDROCHLORIDE [Suspect]
     Active Substance: HYDROMORPHONE HYDROCHLORIDE
     Route: 058
  5. HYDROMORPHONE HYDROCHLORIDE [Suspect]
     Active Substance: HYDROMORPHONE HYDROCHLORIDE
     Route: 065
  6. HYDROMORPHONE HYDROCHLORIDE [Suspect]
     Active Substance: HYDROMORPHONE HYDROCHLORIDE
     Route: 065
  7. HYDROMORPHONE HYDROCHLORIDE [Suspect]
     Active Substance: HYDROMORPHONE HYDROCHLORIDE
     Route: 065
  8. HYDROMORPHONE HYDROCHLORIDE [Suspect]
     Active Substance: HYDROMORPHONE HYDROCHLORIDE
     Route: 058
  9. HYDROMORPHONE HYDROCHLORIDE [Suspect]
     Active Substance: HYDROMORPHONE HYDROCHLORIDE
     Route: 058
  10. HYDROMORPHONE HYDROCHLORIDE [Suspect]
     Active Substance: HYDROMORPHONE HYDROCHLORIDE
     Route: 058
  11. HYDROMORPHONE HYDROCHLORIDE [Suspect]
     Active Substance: HYDROMORPHONE HYDROCHLORIDE
     Route: 065
  12. ALLOPURINOL [Suspect]
     Active Substance: ALLOPURINOL
     Indication: Off label use
     Route: 048
  13. ALLOPURINOL [Suspect]
     Active Substance: ALLOPURINOL
     Indication: Intentional product misuse
     Route: 048
  14. ALLOPURINOL [Suspect]
     Active Substance: ALLOPURINOL
     Indication: Blood uric acid increased
     Route: 048
  15. ALLOPURINOL [Suspect]
     Active Substance: ALLOPURINOL
     Route: 065
  16. ALLOPURINOL [Suspect]
     Active Substance: ALLOPURINOL
     Route: 065
  17. CEFTRIAXONE SODIUM [Suspect]
     Active Substance: CEFTRIAXONE SODIUM
     Indication: Bacterial infection
     Route: 042
  18. CEFTRIAXONE SODIUM [Suspect]
     Active Substance: CEFTRIAXONE SODIUM
     Route: 042
  19. CEFTRIAXONE SODIUM [Suspect]
     Active Substance: CEFTRIAXONE SODIUM
     Route: 065
  20. CEFTRIAXONE SODIUM [Suspect]
     Active Substance: CEFTRIAXONE SODIUM
     Route: 065
  21. DOBUTAMINE [Suspect]
     Active Substance: DOBUTAMINE HYDROCHLORIDE
     Indication: Off label use
     Route: 042
  22. DOBUTAMINE [Suspect]
     Active Substance: DOBUTAMINE HYDROCHLORIDE
     Indication: Cardiogenic shock
     Route: 042
  23. DOBUTAMINE [Suspect]
     Active Substance: DOBUTAMINE HYDROCHLORIDE
     Route: 065
  24. FLUTICASONE [Suspect]
     Active Substance: FLUTICASONE
     Indication: Nutritional supplementation
     Route: 065
  25. GABAPENTIN [Suspect]
     Active Substance: GABAPENTIN
     Indication: Off label use
     Route: 065
  26. GABAPENTIN [Suspect]
     Active Substance: GABAPENTIN
     Indication: Neuralgia
     Route: 048
  27. GABAPENTIN [Suspect]
     Active Substance: GABAPENTIN
     Indication: Intentional product misuse
     Route: 048
  28. GABAPENTIN [Suspect]
     Active Substance: GABAPENTIN
     Route: 048
  29. HEPARIN SODIUM [Suspect]
     Active Substance: HEPARIN SODIUM
     Indication: Anticoagulant therapy
     Route: 042
  30. HEPARIN SODIUM [Suspect]
     Active Substance: HEPARIN SODIUM
     Route: 042
  31. HEPARIN SODIUM [Suspect]
     Active Substance: HEPARIN SODIUM
     Route: 042
  32. HEPARIN SODIUM [Suspect]
     Active Substance: HEPARIN SODIUM
     Route: 017
  33. HEPARIN SODIUM [Suspect]
     Active Substance: HEPARIN SODIUM
     Route: 017
  34. HEPARIN SODIUM [Suspect]
     Active Substance: HEPARIN SODIUM
     Route: 017
  35. HEPARIN SODIUM [Suspect]
     Active Substance: HEPARIN SODIUM
     Route: 042
  36. HEPARIN SODIUM [Suspect]
     Active Substance: HEPARIN SODIUM
     Route: 017
  37. HEPARIN SODIUM [Suspect]
     Active Substance: HEPARIN SODIUM
     Route: 042
  38. HEPARIN SODIUM [Suspect]
     Active Substance: HEPARIN SODIUM
     Route: 065
  39. METRONIDAZOLE [Suspect]
     Active Substance: METRONIDAZOLE
     Indication: Bacterial infection
     Route: 048
  40. METRONIDAZOLE [Suspect]
     Active Substance: METRONIDAZOLE
     Route: 065
  41. METRONIDAZOLE [Suspect]
     Active Substance: METRONIDAZOLE
     Route: 065
  42. METRONIDAZOLE [Suspect]
     Active Substance: METRONIDAZOLE
     Route: 065
  43. METRONIDAZOLE [Suspect]
     Active Substance: METRONIDAZOLE
     Route: 065
  44. METRONIDAZOLE [Suspect]
     Active Substance: METRONIDAZOLE
     Route: 048
  45. METRONIDAZOLE [Suspect]
     Active Substance: METRONIDAZOLE
     Route: 048
  46. METRONIDAZOLE [Suspect]
     Active Substance: METRONIDAZOLE
     Route: 048
  47. METRONIDAZOLE [Suspect]
     Active Substance: METRONIDAZOLE
     Route: 048
  48. METRONIDAZOLE [Suspect]
     Active Substance: METRONIDAZOLE
     Route: 048
  49. METRONIDAZOLE [Suspect]
     Active Substance: METRONIDAZOLE
     Route: 065
  50. NOREPINEPHRINE [Suspect]
     Active Substance: NOREPINEPHRINE
     Indication: Stress
     Route: 048
  51. NOREPINEPHRINE [Suspect]
     Active Substance: NOREPINEPHRINE
     Route: 042
  52. NOREPINEPHRINE [Suspect]
     Active Substance: NOREPINEPHRINE
     Route: 042
  53. NOREPINEPHRINE [Suspect]
     Active Substance: NOREPINEPHRINE
     Route: 065
  54. NOREPINEPHRINE [Suspect]
     Active Substance: NOREPINEPHRINE
     Route: 048
  55. POTASSIUM CHLORIDE [Suspect]
     Active Substance: POTASSIUM CHLORIDE
     Indication: Constipation
     Route: 065
  56. POTASSIUM CHLORIDE [Suspect]
     Active Substance: POTASSIUM CHLORIDE
     Route: 048
  57. ALBUTEROL [Suspect]
     Active Substance: ALBUTEROL
     Indication: Off label use
     Route: 055
  58. ALBUTEROL [Suspect]
     Active Substance: ALBUTEROL
     Indication: Intentional product misuse
     Route: 065
  59. ALBUTEROL [Suspect]
     Active Substance: ALBUTEROL
     Indication: Chronic obstructive pulmonary disease
     Route: 065
  60. ALBUTEROL [Suspect]
     Active Substance: ALBUTEROL
     Route: 055
  61. ALBUTEROL [Suspect]
     Active Substance: ALBUTEROL
     Route: 055
  62. ALBUTEROL [Suspect]
     Active Substance: ALBUTEROL
     Route: 065
  63. ALBUTEROL [Suspect]
     Active Substance: ALBUTEROL
     Route: 055
  64. ALBUTEROL [Suspect]
     Active Substance: ALBUTEROL
     Route: 065
  65. ALBUTEROL [Suspect]
     Active Substance: ALBUTEROL
     Route: 055
  66. ALBUTEROL [Suspect]
     Active Substance: ALBUTEROL
     Route: 055
  67. ALBUTEROL [Suspect]
     Active Substance: ALBUTEROL
     Route: 055
  68. ALBUTEROL [Suspect]
     Active Substance: ALBUTEROL
     Route: 065
  69. ALBUTEROL [Suspect]
     Active Substance: ALBUTEROL
     Route: 065
  70. ALBUTEROL [Suspect]
     Active Substance: ALBUTEROL
     Route: 065
  71. ALBUTEROL [Suspect]
     Active Substance: ALBUTEROL
     Route: 055
  72. AMIODARONE [Suspect]
     Active Substance: AMIODARONE
     Indication: Ventricular fibrillation
     Route: 065
  73. AMIODARONE [Suspect]
     Active Substance: AMIODARONE
     Indication: Intentional product misuse
     Route: 065
  74. AMIODARONE [Suspect]
     Active Substance: AMIODARONE
     Indication: Off label use
     Route: 042
  75. AMIODARONE [Suspect]
     Active Substance: AMIODARONE
     Indication: Drug therapy
     Route: 042
  76. AMIODARONE [Suspect]
     Active Substance: AMIODARONE
     Route: 042
  77. AMIODARONE [Suspect]
     Active Substance: AMIODARONE
     Route: 042
  78. AMIODARONE [Suspect]
     Active Substance: AMIODARONE
     Route: 065
  79. DOCUSATE SODIUM [Suspect]
     Active Substance: DOCUSATE SODIUM
     Indication: Product used for unknown indication
     Route: 065
  80. LANSOPRAZOLE [Suspect]
     Active Substance: LANSOPRAZOLE
     Indication: Off label use
     Route: 048
  81. LANSOPRAZOLE [Suspect]
     Active Substance: LANSOPRAZOLE
     Indication: Intentional product misuse
  82. LANSOPRAZOLE [Suspect]
     Active Substance: LANSOPRAZOLE
     Indication: Antacid therapy
  83. LANSOPRAZOLE [Suspect]
     Active Substance: LANSOPRAZOLE
     Indication: Off label use
     Route: 048
  84. LANSOPRAZOLE [Suspect]
     Active Substance: LANSOPRAZOLE
     Indication: Intentional product misuse
     Route: 048
  85. LANSOPRAZOLE [Suspect]
     Active Substance: LANSOPRAZOLE
     Indication: Antacid therapy
  86. ONDANSETRON [Suspect]
     Active Substance: ONDANSETRON
     Indication: Vomiting
     Route: 042
  87. ONDANSETRON [Suspect]
     Active Substance: ONDANSETRON
     Indication: Off label use
     Route: 042
  88. ONDANSETRON [Suspect]
     Active Substance: ONDANSETRON
     Indication: Nausea
     Route: 042
  89. ONDANSETRON [Suspect]
     Active Substance: ONDANSETRON
     Route: 042
  90. ONDANSETRON [Suspect]
     Active Substance: ONDANSETRON
     Route: 042
  91. ONDANSETRON [Suspect]
     Active Substance: ONDANSETRON
     Route: 042
  92. ONDANSETRON [Suspect]
     Active Substance: ONDANSETRON
     Route: 065
  93. ONDANSETRON [Suspect]
     Active Substance: ONDANSETRON
     Route: 042
  94. ONDANSETRON [Suspect]
     Active Substance: ONDANSETRON
     Route: 065
  95. ONDANSETRON [Suspect]
     Active Substance: ONDANSETRON
     Route: 042
  96. ONDANSETRON [Suspect]
     Active Substance: ONDANSETRON
     Route: 042
  97. ONDANSETRON [Suspect]
     Active Substance: ONDANSETRON
     Route: 012
  98. ONDANSETRON [Suspect]
     Active Substance: ONDANSETRON
     Route: 042
  99. ONDANSETRON [Suspect]
     Active Substance: ONDANSETRON
     Route: 042
  100. ONDANSETRON [Suspect]
     Active Substance: ONDANSETRON
     Route: 042
  101. ONDANSETRON [Suspect]
     Active Substance: ONDANSETRON
     Route: 042
  102. ONDANSETRON [Suspect]
     Active Substance: ONDANSETRON
     Route: 042
  103. ONDANSETRON [Suspect]
     Active Substance: ONDANSETRON
     Route: 042
  104. ONDANSETRON [Suspect]
     Active Substance: ONDANSETRON
     Route: 042
  105. ONDANSETRON [Suspect]
     Active Substance: ONDANSETRON
     Route: 065
  106. ONDANSETRON [Suspect]
     Active Substance: ONDANSETRON
     Route: 042
  107. ONDANSETRON [Suspect]
     Active Substance: ONDANSETRON
     Route: 042
  108. ONDANSETRON [Suspect]
     Active Substance: ONDANSETRON
     Route: 048
  109. ONDANSETRON [Suspect]
     Active Substance: ONDANSETRON
     Route: 048
  110. ONDANSETRON [Suspect]
     Active Substance: ONDANSETRON
     Route: 042
  111. ONDANSETRON [Suspect]
     Active Substance: ONDANSETRON
     Route: 042
  112. ONDANSETRON [Suspect]
     Active Substance: ONDANSETRON
     Route: 042
  113. ONDANSETRON [Suspect]
     Active Substance: ONDANSETRON
     Route: 042
  114. ONDANSETRON [Suspect]
     Active Substance: ONDANSETRON
     Route: 042
  115. ONDANSETRON [Suspect]
     Active Substance: ONDANSETRON
     Route: 042
  116. ONDANSETRON [Suspect]
     Active Substance: ONDANSETRON
     Route: 042
  117. SODIUM BICARBONATE [Suspect]
     Active Substance: SODIUM BICARBONATE
     Indication: Constipation
     Route: 065
  118. SIMVASTATIN [Suspect]
     Active Substance: SIMVASTATIN
     Indication: Vitamin supplementation
     Route: 065
  119. SIMVASTATIN [Suspect]
     Active Substance: SIMVASTATIN
     Indication: Off label use
     Route: 065
  120. SIMVASTATIN [Suspect]
     Active Substance: SIMVASTATIN
     Indication: Blood cholesterol increased
     Route: 048
  121. SIMVASTATIN [Suspect]
     Active Substance: SIMVASTATIN
     Route: 048
  122. THEOPHYLLINE [Suspect]
     Active Substance: THEOPHYLLINE
     Indication: Off label use
     Route: 065
  123. THEOPHYLLINE [Suspect]
     Active Substance: THEOPHYLLINE
     Indication: Intentional product misuse
     Route: 065
  124. THEOPHYLLINE [Suspect]
     Active Substance: THEOPHYLLINE
     Route: 065
  125. THEOPHYLLINE [Suspect]
     Active Substance: THEOPHYLLINE
     Route: 065
  126. THEOPHYLLINE [Suspect]
     Active Substance: THEOPHYLLINE
     Route: 065
  127. THEOPHYLLINE [Suspect]
     Active Substance: THEOPHYLLINE
     Route: 065
  128. THEOPHYLLINE [Suspect]
     Active Substance: THEOPHYLLINE
     Route: 065
  129. VASOPRESSIN [Suspect]
     Active Substance: VASOPRESSIN
     Indication: Thrombosis
     Route: 065
  130. VASOPRESSIN [Suspect]
     Active Substance: VASOPRESSIN
     Indication: Drug therapy
     Route: 065
  131. VASOPRESSIN [Suspect]
     Active Substance: VASOPRESSIN
     Route: 065
  132. VASOPRESSIN [Suspect]
     Active Substance: VASOPRESSIN
     Route: 017
  133. VASOPRESSIN [Suspect]
     Active Substance: VASOPRESSIN
     Route: 065
  134. VASOPRESSIN [Suspect]
     Active Substance: VASOPRESSIN
     Route: 042
  135. VITAMIN C [Suspect]
     Active Substance: ASCORBIC ACID
     Indication: Constipation
     Route: 048
  136. VITAMIN K1 [Suspect]
     Active Substance: PHYTONADIONE
     Indication: Vitamin supplementation
     Route: 042
  137. VITAMIN K1 [Suspect]
     Active Substance: PHYTONADIONE
     Route: 065
  138. VITAMIN K1 [Suspect]
     Active Substance: PHYTONADIONE
     Route: 042

REACTIONS (8)
  - Diabetes mellitus [Fatal]
  - Drug hypersensitivity [Fatal]
  - Drug intolerance [Fatal]
  - Drug therapy [Fatal]
  - Dry mouth [Fatal]
  - Dyspnoea [Fatal]
  - Gout [Fatal]
  - Hypophosphataemia [Fatal]
